FAERS Safety Report 18571705 (Version 2)
Quarter: 2023Q2

REPORT INFORMATION
  Report Type: Spontaneous
  Country: VE (occurrence: VE)
  Receive Date: 20201202
  Receipt Date: 20230404
  Transmission Date: 20230721
  Serious: Yes (Other)
  Sender: FDA-Public Use
  Company Number: VE-NOVARTISPH-NVSC2020VE318499

PATIENT
  Sex: Female

DRUGS (1)
  1. GLIVEC [Suspect]
     Active Substance: IMATINIB MESYLATE
     Indication: Chronic myeloid leukaemia
     Dosage: 400 MG (4 OF 100 MG)
     Route: 065

REACTIONS (8)
  - Ocular discomfort [Unknown]
  - Ocular hyperaemia [Unknown]
  - Peripheral swelling [Unknown]
  - Product availability issue [Unknown]
  - Malaise [Unknown]
  - Dizziness [Unknown]
  - Pyrexia [Unknown]
  - Erythema [Unknown]
